FAERS Safety Report 10981497 (Version 1)
Quarter: 2015Q1

REPORT INFORMATION
  Report Type: Spontaneous
  Country: US (occurrence: None)
  Receive Date: 20150227
  Receipt Date: 20150227
  Transmission Date: 20150721
  Serious: Yes (Other)
  Sender: FDA-Public Use
  Company Number: LMI-2014-00485

PATIENT
  Age: 19 Year
  Sex: Female

DRUGS (1)
  1. DEFINITY [Suspect]
     Active Substance: PERFLUTREN
     Indication: ECHOCARDIOGRAM
     Dosage: UNKNOWN AMOUNT OF DEFINITY DILUTED IN 8.5 ML 0.9% SODIUIM CHLORIDE (1ML 1 IN 1 D)
     Route: 040
     Dates: start: 20141030, end: 20141030

REACTIONS (10)
  - Postictal state [None]
  - Loss of consciousness [None]
  - Sinus tachycardia [None]
  - Back pain [None]
  - Staring [None]
  - Decorticate posture [None]
  - Feeling abnormal [None]
  - Flushing [None]
  - Seizure like phenomena [None]
  - Muscle rigidity [None]

NARRATIVE: CASE EVENT DATE: 20141030
